FAERS Safety Report 16283109 (Version 8)
Quarter: 2022Q1

REPORT INFORMATION
  Report Type: Report from Study
  Country: FR (occurrence: FR)
  Receive Date: 20190507
  Receipt Date: 20220121
  Transmission Date: 20220423
  Serious: Yes (Hospitalization, Other)
  Sender: FDA-Public Use
  Company Number: FR-TAKEDA-2018MPI015051

PATIENT
  Sex: Female
  Weight: 95 kg

DRUGS (15)
  1. DEXAMETHASONE [Suspect]
     Active Substance: DEXAMETHASONE
     Indication: Plasma cell myeloma
     Route: 065
  2. IXAZOMIB [Suspect]
     Active Substance: IXAZOMIB
     Indication: Plasma cell myeloma
     Route: 065
     Dates: start: 20180711
  3. REVLIMID [Suspect]
     Active Substance: LENALIDOMIDE
     Indication: Plasma cell myeloma
     Route: 048
  4. REVLIMID [Suspect]
     Active Substance: LENALIDOMIDE
     Route: 048
     Dates: start: 20180711
  5. TRAMADOL [Concomitant]
     Active Substance: TRAMADOL
     Indication: Pain
  6. SMECTA [Concomitant]
     Active Substance: MONTMORILLONITE
     Indication: Diarrhoea
     Route: 048
     Dates: start: 20190802
  7. ELIQUIS [Concomitant]
     Active Substance: APIXABAN
     Indication: Product used for unknown indication
  8. DOXYCYCLINE HYDROCHLORIDE [Concomitant]
     Active Substance: DOXYCYCLINE HYDROCHLORIDE
     Indication: Bronchitis
     Route: 048
     Dates: start: 20190812
  9. DAFALGAN CODEINE [Concomitant]
     Active Substance: ACETAMINOPHEN\CODEINE PHOSPHATE
     Indication: Pain
  10. ACETAMINOPHEN [Concomitant]
     Active Substance: ACETAMINOPHEN
     Indication: Pain
  11. PREDNISONE [Concomitant]
     Active Substance: PREDNISONE
     Indication: Gout
     Dates: start: 20190806
  12. PREDNISONE [Concomitant]
     Active Substance: PREDNISONE
     Dates: start: 20190803
  13. PREDNISONE [Concomitant]
     Active Substance: PREDNISONE
     Dates: start: 20190809
  14. DOXYCYCLINE [Concomitant]
     Active Substance: DOXYCYCLINE
     Indication: Bronchitis
     Dosage: DOXYCYCLINE
     Dates: start: 20190812
  15. COLCHICINE [Concomitant]
     Active Substance: COLCHICINE
     Indication: Gout
     Dates: start: 20190727

REACTIONS (22)
  - Neutropenia [Recovered/Resolved]
  - Fall [Recovered/Resolved]
  - Anaemia [Recovered/Resolved]
  - Arthralgia [Recovered/Resolved]
  - Rhabdomyolysis [Recovered/Resolved]
  - Inflammation [Recovered/Resolved]
  - Gout [Recovered/Resolved]
  - Breast pain [Recovered/Resolved]
  - Renal failure [Recovered/Resolved]
  - Dehydration [Recovered/Resolved]
  - General physical health deterioration [Recovered/Resolved]
  - Pain in extremity [Recovering/Resolving]
  - Oedema peripheral [Recovered/Resolved]
  - Hyperuricaemia [Recovered/Resolved]
  - Cough [Not Recovered/Not Resolved]
  - Femur fracture [Recovered/Resolved]
  - Thrombocytopenia [Recovered/Resolved]
  - Diarrhoea [Recovered/Resolved]
  - Urinary tract infection [Recovered/Resolved]
  - Bronchitis bacterial [Recovered/Resolved]
  - Vomiting [Recovered/Resolved]
  - Weight decreased [Unknown]

NARRATIVE: CASE EVENT DATE: 20180828
